FAERS Safety Report 10824483 (Version 1)
Quarter: 2015Q1

REPORT INFORMATION
  Report Type: Report from Study
  Country: US (occurrence: US)
  Receive Date: 20150219
  Receipt Date: 20150219
  Transmission Date: 20150721
  Serious: Yes (Other)
  Sender: FDA-Public Use
  Company Number: US-ABBVIE-14K-163-1312765-00

PATIENT
  Sex: Female

DRUGS (1)
  1. HUMIRA [Suspect]
     Active Substance: ADALIMUMAB
     Indication: PSORIASIS
     Route: 065
     Dates: start: 2006

REACTIONS (6)
  - Skin cancer [Unknown]
  - Injection site pain [Not Recovered/Not Resolved]
  - Melanocytic naevus [Not Recovered/Not Resolved]
  - Skin lesion [Unknown]
  - Skin cancer [Recovered/Resolved]
  - Acrochordon [Not Recovered/Not Resolved]

NARRATIVE: CASE EVENT DATE: 2006
